FAERS Safety Report 11536341 (Version 1)
Quarter: 2015Q3

REPORT INFORMATION
  Report Type: Report from Study
  Country: FR (occurrence: FR)
  Receive Date: 20150922
  Receipt Date: 20150922
  Transmission Date: 20151125
  Serious: Yes (Hospitalization)
  Sender: FDA-Public Use
  Company Number: FR-ROCHE-1634897

PATIENT
  Age: 46 Year
  Sex: Female
  Weight: 73.7 kg

DRUGS (20)
  1. TRASTUZUMAB [Suspect]
     Active Substance: TRASTUZUMAB
     Dosage: CYCLE 3
     Route: 042
     Dates: start: 20141024
  2. TRASTUZUMAB [Suspect]
     Active Substance: TRASTUZUMAB
     Dosage: CYCLE 7
     Route: 042
     Dates: start: 20150116
  3. XANAX [Concomitant]
     Active Substance: ALPRAZOLAM
     Indication: ANXIETY
     Route: 065
     Dates: start: 201409
  4. TRASTUZUMAB [Suspect]
     Active Substance: TRASTUZUMAB
     Dosage: CYCLE 14
     Route: 042
     Dates: start: 20150612
  5. TAMOXIFEN [Concomitant]
     Active Substance: TAMOXIFEN
     Route: 065
     Dates: start: 20141104
  6. TRASTUZUMAB [Suspect]
     Active Substance: TRASTUZUMAB
     Dosage: CYCLE 10
     Route: 042
     Dates: start: 20150320
  7. TRASTUZUMAB [Suspect]
     Active Substance: TRASTUZUMAB
     Dosage: CYCLE 2
     Route: 042
     Dates: start: 20141003
  8. TRASTUZUMAB [Suspect]
     Active Substance: TRASTUZUMAB
     Dosage: CYCLE 5
     Route: 042
     Dates: start: 20141205
  9. TRASTUZUMAB [Suspect]
     Active Substance: TRASTUZUMAB
     Dosage: CYCLE 8
     Route: 042
     Dates: start: 20150206
  10. PIRACETAM [Concomitant]
     Active Substance: PIRACETAM
     Indication: TINNITUS
     Route: 065
     Dates: start: 20141004
  11. FONX [Concomitant]
     Route: 065
     Dates: start: 20150529, end: 20150703
  12. TRASTUZUMAB [Suspect]
     Active Substance: TRASTUZUMAB
     Dosage: CYCLE 12
     Route: 042
     Dates: start: 20150430
  13. TRASTUZUMAB [Suspect]
     Active Substance: TRASTUZUMAB
     Dosage: CYCLE 4
     Route: 042
     Dates: start: 20141114
  14. TRASTUZUMAB [Suspect]
     Active Substance: TRASTUZUMAB
     Dosage: CYCLE 6
     Route: 042
     Dates: start: 20141226
  15. TRASTUZUMAB [Suspect]
     Active Substance: TRASTUZUMAB
     Dosage: CYCLE 9
     Route: 042
     Dates: start: 20150227
  16. TRASTUZUMAB [Suspect]
     Active Substance: TRASTUZUMAB
     Dosage: CYCLE 11
     Route: 042
     Dates: start: 20150410
  17. TRASTUZUMAB [Suspect]
     Active Substance: TRASTUZUMAB
     Dosage: CYCLE 13
     Route: 042
     Dates: start: 20150522
  18. DAKIN (FRANCE) [Concomitant]
     Route: 065
     Dates: start: 20150513, end: 201505
  19. TRASTUZUMAB [Suspect]
     Active Substance: TRASTUZUMAB
     Indication: HER-2 POSITIVE BREAST CANCER
     Dosage: CYCLE 1, LAST DOSE PRIOR TO SAE ON 30/APR/2015
     Route: 042
     Dates: start: 20140912
  20. EUPANTOL [Concomitant]
     Active Substance: PANTOPRAZOLE SODIUM
     Indication: ARTHRALGIA
     Route: 065
     Dates: start: 20150517, end: 20150527

REACTIONS (1)
  - Photosensitivity reaction [Recovered/Resolved]

NARRATIVE: CASE EVENT DATE: 20150510
